FAERS Safety Report 9783397 (Version 2)
Quarter: 2013Q4

REPORT INFORMATION
  Report Type: Spontaneous
  Country: ES (occurrence: ES)
  Receive Date: 20131226
  Receipt Date: 20131226
  Transmission Date: 20140711
  Serious: Yes (Other)
  Sender: FDA-Public Use
  Company Number: ES-BRISTOL-MYERS SQUIBB COMPANY-19471150

PATIENT
  Age: 39 Year
  Sex: Female

DRUGS (4)
  1. ABILIFY [Suspect]
     Indication: SCHIZOPHRENIA
     Dosage: DOSE REDUCED:15 MG/DAILY?1AUG13-28OCT13-30MG?28OCT13-04NOV13-15MG
     Route: 048
     Dates: start: 20130801, end: 20131104
  2. LORMETAZEPAM [Concomitant]
     Indication: INSOMNIA
     Route: 048
  3. MIDAZOLAM [Concomitant]
     Route: 048
  4. LORAZEPAM [Concomitant]
     Indication: ANXIETY
     Route: 048

REACTIONS (2)
  - Photosensitivity reaction [Recovering/Resolving]
  - Erythema [Recovering/Resolving]
